FAERS Safety Report 9690108 (Version 1)
Quarter: 2013Q4

REPORT INFORMATION
  Report Type: Report from Study
  Country: US (occurrence: US)
  Receive Date: 20131115
  Receipt Date: 20131115
  Transmission Date: 20140711
  Serious: Yes (Hospitalization)
  Sender: FDA-Public Use
  Company Number: US-009507513-1311USA003368

PATIENT
  Age: 59 Year
  Sex: Male
  Weight: 112.2 kg

DRUGS (3)
  1. VORINOSTAT [Suspect]
     Indication: SQUAMOUS CELL CARCINOMA OF HEAD AND NECK
     Dosage: 200MG PILL ON MON., WED., AND FRI
     Route: 048
     Dates: start: 20130902
  2. CISPLATIN [Suspect]
     Indication: SQUAMOUS CELL CARCINOMA OF HEAD AND NECK
     Dosage: 100MG/M2
     Route: 042
     Dates: start: 20130909, end: 20130909
  3. CISPLATIN [Suspect]
     Dosage: 100 MG/M2, UNK
     Dates: start: 20131007, end: 20131007

REACTIONS (2)
  - Hypocalcaemia [Unknown]
  - Neutropenia [Unknown]
